FAERS Safety Report 7167972-6 (Version None)
Quarter: 2010Q4

REPORT INFORMATION
  Report Type: 
  Country: None (occurrence: None)
  Receive Date: 20101216
  Receipt Date: 20101209
  Transmission Date: 20110411
  Serious: No
  Sender: FDA-Public Use
  Company Number: US-PFIZER INC-2010168979

PATIENT
  Sex: Female
  Weight: 68.027 kg

DRUGS (2)
  1. XANAX [Suspect]
     Indication: ANXIETY
     Dosage: FREQUENCY: AS NEEDED,
     Dates: end: 20101209
  2. THYROID [Concomitant]
     Indication: HYPOTHYROIDISM

REACTIONS (3)
  - EYE SWELLING [None]
  - HEADACHE [None]
  - HYPERSENSITIVITY [None]
